FAERS Safety Report 6707466-2 (Version None)
Quarter: 2010Q2

REPORT INFORMATION
  Report Type: 
  Country: None (occurrence: None)
  Receive Date: 20100503
  Receipt Date: 20090611
  Transmission Date: 20101027
  Serious: No
  Sender: FDA-Public Use
  Company Number: US-ASTRAZENECA-2009UW15004

PATIENT
  Age: 57 Year
  Sex: Female
  Weight: 40.8 kg

DRUGS (3)
  1. NEXIUM [Suspect]
     Indication: GASTROOESOPHAGEAL REFLUX DISEASE
     Route: 048
  2. NEXIUM [Suspect]
     Route: 048
     Dates: start: 20090601, end: 20090601
  3. TYLENOL-500 [Concomitant]

REACTIONS (2)
  - DIZZINESS [None]
  - DRUG DOSE OMISSION [None]
